FAERS Safety Report 9200582 (Version 1)
Quarter: 2013Q1

REPORT INFORMATION
  Report Type: Spontaneous
  Country: FR (occurrence: FR)
  Receive Date: 20130329
  Receipt Date: 20130329
  Transmission Date: 20140127
  Serious: Yes (Hospitalization)
  Sender: FDA-Public Use
  Company Number: FR-PFIZER INC-2013101977

PATIENT
  Age: 56 Year
  Sex: Female

DRUGS (6)
  1. TRIATEC [Suspect]
     Dosage: 2.5 MG, 2X/DAY
     Dates: end: 20130215
  2. LASILIX [Suspect]
     Dosage: 40 MG, 1X/DAY
     Route: 048
     Dates: end: 20130219
  3. BISOPROLOL [Concomitant]
     Dosage: UNK
  4. ZOLPIDEM [Concomitant]
     Dosage: UNK
  5. TEMESTA [Concomitant]
     Dosage: UNK
  6. INEXIUM [Concomitant]
     Dosage: UNK

REACTIONS (1)
  - Atrial tachycardia [Recovered/Resolved]
